FAERS Safety Report 5323667-2 (Version None)
Quarter: 2007Q2

REPORT INFORMATION
  Report Type: 
  Country: None (occurrence: None)
  Receive Date: 20070510
  Receipt Date: 20070510
  Transmission Date: 20071010
  Serious: Yes (Death, Life-Threatening, Hospitalization)
  Sender: FDA-Public Use
  Company Number: None

PATIENT
  Age: 59 Year
  Sex: Male
  Weight: 135 kg

DRUGS (2)
  1. SIMVASTATIN [Suspect]
     Indication: DYSLIPIDAEMIA
     Dosage: 80 MG PO QD
     Route: 048
     Dates: start: 20031031, end: 20070315
  2. KETOCONAZOLE [Suspect]
     Indication: PITUITARY TUMOUR BENIGN
     Dosage: 400 MG PO QD
     Route: 048
     Dates: start: 20070212, end: 20070315

REACTIONS (2)
  - DRUG INTERACTION [None]
  - RHABDOMYOLYSIS [None]
